FAERS Safety Report 4873822-0 (Version None)
Quarter: 2006Q1

REPORT INFORMATION
  Report Type: 
  Country: None (occurrence: None)
  Receive Date: 20060104
  Receipt Date: 20051227
  Transmission Date: 20060701
  Serious: Yes (Hospitalization, Other)
  Sender: FDA-Public Use
  Company Number: KII-2005-0020453

PATIENT
  Age: 25 Year
  Sex: Male

DRUGS (6)
  1. OXYCONTIN [Suspect]
     Indication: INTENTIONAL DRUG MISUSE
     Dosage: INTRAVENOUS
     Route: 042
  2. METHADONE HCL [Suspect]
     Dosage: ORAL
     Route: 048
  3. BENZODIAZEPINE DERIVATIVES () [Suspect]
     Dosage: ORAL
     Route: 048
  4. COCAINE (COCAINE) [Suspect]
     Indication: INTENTIONAL DRUG MISUSE
  5. TETRAHYDROCANNABINOL (TETRAHYDROCANNABINOL) [Suspect]
     Indication: INTENTIONAL DRUG MISUSE
  6. METAMFETAMINE (METAMFETAMINE) [Suspect]
     Indication: INTENTIONAL DRUG MISUSE

REACTIONS (15)
  - ASPIRATION [None]
  - BLOOD POTASSIUM INCREASED [None]
  - BODY TEMPERATURE INCREASED [None]
  - ERYTHEMA [None]
  - INTENTIONAL DRUG MISUSE [None]
  - LETHARGY [None]
  - LOSS OF CONSCIOUSNESS [None]
  - MULTIPLE DRUG OVERDOSE ACCIDENTAL [None]
  - OEDEMA PERIPHERAL [None]
  - POLYSUBSTANCE ABUSE [None]
  - RESPIRATORY RATE DECREASED [None]
  - SKIN WARM [None]
  - SPUTUM DISCOLOURED [None]
  - VOMITING [None]
  - WHITE BLOOD CELL COUNT DECREASED [None]
